FAERS Safety Report 21046016 (Version 1)
Quarter: 2022Q3

REPORT INFORMATION
  Report Type: Other
  Country: IN (occurrence: None)
  Receive Date: 20220706
  Receipt Date: 20220706
  Transmission Date: 20221026
  Serious: Yes (Hospitalization, Other)
  Sender: FDA-Public Use
  Company Number: IN-ROCHE-3128978

PATIENT
  Age: 42 Year
  Sex: Female

DRUGS (2)
  1. ERLOTINIB [Suspect]
     Active Substance: ERLOTINIB
     Indication: Renal cell carcinoma
     Route: 048
  2. BEVACIZUMAB [Suspect]
     Active Substance: BEVACIZUMAB
     Indication: Renal cell carcinoma
     Dosage: 46 CYCLES
     Route: 065
     Dates: start: 201911

REACTIONS (2)
  - Cholecystitis acute [Unknown]
  - Dermatitis acneiform [Unknown]
